FAERS Safety Report 18683558 (Version 1)
Quarter: 2020Q4

REPORT INFORMATION
  Report Type: Spontaneous
  Country: US (occurrence: US)
  Receive Date: 20201230
  Receipt Date: 20201230
  Transmission Date: 20210114
  Serious: Yes (Other)
  Sender: FDA-Public Use
  Company Number: US-PFIZER INC-2020237848

PATIENT
  Age: 66 Year
  Sex: Female
  Weight: 57.61 kg

DRUGS (1)
  1. IBRANCE [Suspect]
     Active Substance: PALBOCICLIB
     Indication: BREAST CANCER METASTATIC
     Dosage: 100 MG, 1X/DAY
     Route: 048
     Dates: start: 201803

REACTIONS (11)
  - Hypoglycaemia [Unknown]
  - Oestrogen receptor assay positive [Unknown]
  - Mucosal inflammation [Unknown]
  - Hair growth abnormal [Unknown]
  - Lymphadenopathy [Unknown]
  - Product storage error [Unknown]
  - Depression [Unknown]
  - Arthralgia [Unknown]
  - Agranulocytosis [Unknown]
  - Chronic kidney disease [Unknown]
  - Osteopenia [Unknown]
